FAERS Safety Report 16315943 (Version 3)
Quarter: 2019Q3

REPORT INFORMATION
  Report Type: Spontaneous
  Country: US (occurrence: US)
  Receive Date: 20190515
  Receipt Date: 20190703
  Transmission Date: 20191004
  Serious: Yes (Hospitalization)
  Sender: FDA-Public Use
  Company Number: US-SA-2019SA126007

PATIENT
  Age: 62 Year
  Sex: Female

DRUGS (1)
  1. LANTUS SOLOSTAR [Suspect]
     Active Substance: INSULIN GLARGINE
     Dosage: 93 U, HS, WHICH SHE TAKES AS 80 UNITS AND THEN 13 UNITS
     Route: 065

REACTIONS (4)
  - Blood glucose fluctuation [Unknown]
  - Blood glucose increased [Unknown]
  - Dyspnoea [Unknown]
  - Gait disturbance [Unknown]

NARRATIVE: CASE EVENT DATE: 20190506
